FAERS Safety Report 8804855 (Version 2)
Quarter: 2012Q4

REPORT INFORMATION
  Report Type: 
  Country: US (occurrence: US)
  Receive Date: 20120924
  Receipt Date: 20121015
  Transmission Date: 20130627
  Serious: Yes (Hospitalization, Other)
  Sender: FDA-Public Use
  Company Number: US-PFIZER INC-2012235124

PATIENT
  Age: 41 Year
  Sex: Female
  Weight: 90.7 kg

DRUGS (3)
  1. ZOLOFT [Suspect]
     Indication: DEPRESSION
     Dosage: 200 mg, daily
  2. ADVAIR DISKUS [Concomitant]
     Indication: ASTHMA
     Dosage: 100/50 mcg, UNK
  3. FLONASE [Concomitant]
     Indication: ASTHMA
     Dosage: 2 puffs of an unknown dose, daily

REACTIONS (2)
  - Myocardial infarction [Unknown]
  - Cardiomyopathy [Unknown]
